FAERS Safety Report 17857109 (Version 2)
Quarter: 2020Q2

REPORT INFORMATION
  Report Type: Spontaneous
  Country: IT (occurrence: IT)
  Receive Date: 20200603
  Receipt Date: 20200610
  Transmission Date: 20200714
  Serious: Yes (Other)
  Sender: FDA-Public Use
  Company Number: IT-PFIZER INC-2020215940

PATIENT
  Age: 49 Year
  Sex: Female

DRUGS (1)
  1. METHYLPREDNISOLONE. [Suspect]
     Active Substance: METHYLPREDNISOLONE
     Indication: ASTHMA
     Dosage: UNK (PROLONGED USE)
     Route: 048

REACTIONS (5)
  - Blood pressure abnormal [Unknown]
  - Insomnia [Unknown]
  - Weight increased [Unknown]
  - Irritability [Unknown]
  - Drug dependence [Unknown]
